FAERS Safety Report 4393603-4 (Version None)
Quarter: 2004Q3

REPORT INFORMATION
  Report Type: 
  Country: None (occurrence: None)
  Receive Date: 20040709
  Receipt Date: 20040701
  Transmission Date: 20050211
  Serious: Yes (Hospitalization)
  Sender: FDA-Public Use
  Company Number: US-AMGEN-US077706

PATIENT
  Sex: Female
  Weight: 86.3 kg

DRUGS (4)
  1. ARANESP [Suspect]
     Indication: ANAEMIA OF MALIGNANT DISEASE
     Route: 058
     Dates: start: 20040123, end: 20040506
  2. CARBOPLATIN [Concomitant]
     Dates: start: 20011130, end: 20020321
  3. HYCAMTIN [Concomitant]
     Dates: start: 20040205
  4. TAXOL [Concomitant]

REACTIONS (3)
  - ABDOMINAL PAIN UPPER [None]
  - DRUG INEFFECTIVE [None]
  - FATIGUE [None]
